FAERS Safety Report 19619346 (Version 2)
Quarter: 2021Q3

REPORT INFORMATION
  Report Type: Spontaneous
  Country: US (occurrence: US)
  Receive Date: 20210728
  Receipt Date: 20210806
  Transmission Date: 20211014
  Serious: No
  Sender: FDA-Public Use
  Company Number: US-STRONGBRIDGE BIOPHARMA-2021-STR-000239

PATIENT
  Sex: Female

DRUGS (3)
  1. KEVEYIS [Suspect]
     Active Substance: DICHLORPHENAMIDE
     Indication: FAMILIAL PERIODIC PARALYSIS
     Dosage: 50 MG, QD
     Route: 048
     Dates: start: 20210624
  2. KEVEYIS [Suspect]
     Active Substance: DICHLORPHENAMIDE
     Dosage: 25 MG, QD
     Route: 048
  3. KEVEYIS [Suspect]
     Active Substance: DICHLORPHENAMIDE
     Dosage: 50 MG, QD
     Route: 048

REACTIONS (9)
  - Dyspnoea [Recovering/Resolving]
  - Paraesthesia [Unknown]
  - Heart rate irregular [Unknown]
  - Fatigue [Unknown]
  - Asthenia [Recovering/Resolving]
  - Wrong technique in product usage process [Unknown]
  - Abdominal discomfort [Unknown]
  - Disease recurrence [Recovering/Resolving]
  - Migraine [Unknown]
